FAERS Safety Report 18063293 (Version 1)
Quarter: 2020Q3

REPORT INFORMATION
  Report Type: Spontaneous
  Country: None (occurrence: TL)
  Receive Date: 20200723
  Receipt Date: 20200723
  Transmission Date: 20201103
  Serious: Yes (Other)
  Sender: FDA-Public Use
  Company Number: TL-POPULATION COUNCIL, INC.-2087669

PATIENT
  Age: 39 Year
  Sex: Female

DRUGS (1)
  1. JADELLE [Suspect]
     Active Substance: LEVONORGESTREL
     Indication: CONTRACEPTION
     Route: 059
     Dates: start: 20150119, end: 20191028

REACTIONS (1)
  - Pregnancy with implant contraceptive [Recovered/Resolved]
